FAERS Safety Report 9361137 (Version 1)
Quarter: 2013Q2

REPORT INFORMATION
  Report Type: Spontaneous
  Country: JP (occurrence: JP)
  Receive Date: 20130621
  Receipt Date: 20130621
  Transmission Date: 20140414
  Serious: Yes (Other)
  Sender: FDA-Public Use
  Company Number: JP-PFIZER INC-2013181328

PATIENT
  Sex: Female

DRUGS (3)
  1. PREMARIN [Suspect]
     Route: 048
  2. PROVERA [Suspect]
     Route: 048
  3. EVISTA [Concomitant]

REACTIONS (2)
  - Lumbar vertebral fracture [Unknown]
  - Gait disturbance [Unknown]
